FAERS Safety Report 4996446-3 (Version None)
Quarter: 2006Q2

REPORT INFORMATION
  Report Type: 
  Country: None (occurrence: None)
  Receive Date: 20060509
  Receipt Date: 20060427
  Transmission Date: 20061013
  Serious: Yes (Other)
  Sender: FDA-Public Use
  Company Number: PHBS2006US06336

PATIENT
  Age: 55 Year
  Sex: Male

DRUGS (9)
  1. CYCLOSPORINE [Suspect]
     Indication: LIVER TRANSPLANT
     Dosage: UNK, UNK
     Route: 065
     Dates: start: 19880101
  2. LANSOPRAZOLE [Concomitant]
  3. ZAROXOLYN [Concomitant]
     Route: 065
  4. ALLOPURINOL [Concomitant]
  5. FOLIC ACID [Concomitant]
  6. EPOGEN [Concomitant]
  7. CALCIUM GLUCONATE [Concomitant]
  8. SEVELAMER [Concomitant]
  9. LORAZEPAM [Concomitant]

REACTIONS (11)
  - DIABETES MELLITUS [None]
  - DIALYSIS [None]
  - EPSTEIN-BARR VIRUS INFECTION [None]
  - HAEMOGLOBIN DECREASED [None]
  - HYPERTENSION [None]
  - IDIOPATHIC THROMBOCYTOPENIC PURPURA [None]
  - LYMPHOCYTIC LEUKAEMIA [None]
  - PLATELET COUNT DECREASED [None]
  - RENAL FAILURE [None]
  - T-CELL LYMPHOMA [None]
  - WHITE BLOOD CELL COUNT DECREASED [None]
